FAERS Safety Report 8570760-7 (Version None)
Quarter: 2012Q3

REPORT INFORMATION
  Report Type: 
  Country: None (occurrence: None)
  Receive Date: 20120805
  Receipt Date: 20120723
  Transmission Date: 20120928
  Serious: No
  Sender: FDA-Public Use
  Company Number: US-009507513-1207USA010551

PATIENT

DRUGS (2)
  1. AMLODIPINE BESYLATE [Suspect]
     Dosage: 10 MG, QD
  2. ZOCOR [Suspect]
     Dosage: 20 MG, QD
     Route: 048

REACTIONS (5)
  - DRUG INTERACTION [None]
  - ARTHROPATHY [None]
  - MYALGIA [None]
  - MUSCLE TIGHTNESS [None]
  - PAIN IN EXTREMITY [None]
